FAERS Safety Report 17988703 (Version 1)
Quarter: 2020Q3

REPORT INFORMATION
  Report Type: Spontaneous
  Country: US (occurrence: US)
  Receive Date: 20200706
  Receipt Date: 20200706
  Transmission Date: 20201103
  Serious: No
  Sender: FDA-Public Use
  Company Number: None

PATIENT
  Sex: Female
  Weight: 88 kg

DRUGS (1)
  1. NEXPLANON [Suspect]
     Active Substance: ETONOGESTREL
     Dates: start: 20160411

REACTIONS (8)
  - Weight increased [None]
  - Anxiety [None]
  - Depression [None]
  - Dysmenorrhoea [None]
  - Chest pain [None]
  - Weight loss poor [None]
  - Vaginal haemorrhage [None]
  - Mood swings [None]
